FAERS Safety Report 8864401 (Version 1)
Quarter: 2012Q4

REPORT INFORMATION
  Report Type: 
  Country: US (occurrence: US)
  Receive Date: 20121024
  Receipt Date: 20121024
  Transmission Date: 20130627
  Serious: No
  Sender: FDA-Public Use
  Company Number: US-AMGEN-USASP2011067214

PATIENT
  Sex: Female

DRUGS (5)
  1. ENBREL [Suspect]
     Indication: PRODUCT USED FOR UNKNOWN INDICATION
     Dosage: 50 mg, qwk
     Route: 058
  2. TRIAMCINOLON                       /00031901/ [Concomitant]
  3. METHYLPRED [Concomitant]
     Dosage: 4 UNK, UNK
  4. WARFARIN [Concomitant]
     Dosage: 1 mg, UNK
  5. CEFPODOXIME [Concomitant]
     Dosage: 100 mg, UNK

REACTIONS (1)
  - Bronchitis [Unknown]
